FAERS Safety Report 25410810 (Version 3)
Quarter: 2025Q3

REPORT INFORMATION
  Report Type: Report from Study
  Country: CA (occurrence: CA)
  Receive Date: 20250609
  Receipt Date: 20250930
  Transmission Date: 20251021
  Serious: Yes (Other)
  Sender: NOVO NORDISK
  Company Number: CA-NOVOPROD-1322657

PATIENT
  Age: 51 Year
  Sex: Female
  Weight: 128.8 kg

DRUGS (8)
  1. WEGOVY [Suspect]
     Active Substance: SEMAGLUTIDE
     Indication: Weight control
     Route: 058
     Dates: start: 20240718
  2. WEGOVY [Suspect]
     Active Substance: SEMAGLUTIDE
     Route: 058
  3. WEGOVY [Suspect]
     Active Substance: SEMAGLUTIDE
     Dosage: 0.75 MG, QW
     Route: 058
     Dates: start: 20241031
  4. WEGOVY [Suspect]
     Active Substance: SEMAGLUTIDE
     Route: 058
     Dates: start: 20241031
  5. WEGOVY [Suspect]
     Active Substance: SEMAGLUTIDE
     Dosage: 1 MG, QW
     Route: 058
     Dates: start: 20250109
  6. WEGOVY [Suspect]
     Active Substance: SEMAGLUTIDE
     Indication: Weight control
     Route: 058
     Dates: start: 20250206, end: 20250206
  7. WEGOVY [Suspect]
     Active Substance: SEMAGLUTIDE
     Dosage: 1.7 MG, QW
     Route: 058
     Dates: start: 20250213
  8. WEGOVY [Suspect]
     Active Substance: SEMAGLUTIDE
     Indication: Weight control
     Dosage: 2.4 MG, QW
     Route: 058
     Dates: start: 20250417

REACTIONS (25)
  - Constipation [Recovering/Resolving]
  - Fatigue [Recovering/Resolving]
  - Nausea [Recovering/Resolving]
  - Headache [Recovered/Resolved]
  - Sensitive skin [Not Recovered/Not Resolved]
  - Weight increased [Not Recovered/Not Resolved]
  - Drug effect less than expected [Not Recovered/Not Resolved]
  - Nasopharyngitis [Not Recovered/Not Resolved]
  - Pain in extremity [Not Recovered/Not Resolved]
  - Dizziness [Not Recovered/Not Resolved]
  - Nausea [Recovered/Resolved]
  - Eructation [Recovered/Resolved]
  - Hiccups [Recovered/Resolved]
  - Constipation [Recovering/Resolving]
  - Fatigue [Not Recovered/Not Resolved]
  - Bursitis [Not Recovered/Not Resolved]
  - Palpitations [Not Recovered/Not Resolved]
  - Hot flush [Recovered/Resolved]
  - Hyperhidrosis [Recovered/Resolved]
  - Vision blurred [Not Recovered/Not Resolved]
  - Condition aggravated [Not Recovered/Not Resolved]
  - Chest pain [Recovered/Resolved]
  - Off label use [Unknown]
  - Wrong technique in product usage process [Recovered/Resolved]
  - Wrong technique in product usage process [Recovered/Resolved]

NARRATIVE: CASE EVENT DATE: 20240718
